FAERS Safety Report 15795956 (Version 1)
Quarter: 2019Q1

REPORT INFORMATION
  Report Type: Spontaneous
  Country: US (occurrence: US)
  Receive Date: 20190107
  Receipt Date: 20190107
  Transmission Date: 20190417
  Serious: No
  Sender: FDA-Public Use
  Company Number: US-MYLANLABS-2018M1093005

PATIENT

DRUGS (1)
  1. ESTRADIOL TRANSDERMAL SYSTEM [Suspect]
     Active Substance: ESTRADIOL
     Indication: MENSTRUAL DISORDER
     Dosage: UNK UNK, QW
     Route: 062

REACTIONS (2)
  - Product adhesion issue [Unknown]
  - Wrong technique in product usage process [Unknown]
